FAERS Safety Report 14804382 (Version 1)
Quarter: 2018Q2

REPORT INFORMATION
  Report Type: Spontaneous
  Country: US (occurrence: US)
  Receive Date: 20180425
  Receipt Date: 20180425
  Transmission Date: 20180711
  Serious: No
  Sender: FDA-Public Use
  Company Number: US-B.I. PHARMACEUTICALS,INC./RIDGEFIELD-2018-BI-021261

PATIENT
  Sex: Female

DRUGS (2)
  1. FENOFIBRATE. [Concomitant]
     Active Substance: FENOFIBRATE
     Indication: BLOOD TRIGLYCERIDES INCREASED
     Route: 065
  2. JARDIANCE [Suspect]
     Active Substance: EMPAGLIFLOZIN
     Indication: PRODUCT USED FOR UNKNOWN INDICATION
     Dosage: FORM STRENGTH: 25 MG; ADMINISTRATION CORRECT? YES, ACTION(S) TAKEN WITH PRODUCT: DOSE NOT CHANGED
     Route: 048

REACTIONS (1)
  - Blood triglycerides decreased [Not Recovered/Not Resolved]
